APPROVED DRUG PRODUCT: SLO-PHYLLIN
Active Ingredient: THEOPHYLLINE
Strength: 60MG
Dosage Form/Route: CAPSULE, EXTENDED RELEASE;ORAL
Application: A085206 | Product #001
Applicant: SANOFI AVENTIS US LLC
Approved: May 24, 1982 | RLD: No | RS: No | Type: DISCN